FAERS Safety Report 11110480 (Version 1)
Quarter: 2015Q2

REPORT INFORMATION
  Report Type: Spontaneous
  Country: US (occurrence: US)
  Receive Date: 20150513
  Receipt Date: 20150513
  Transmission Date: 20150821
  Serious: Yes (Other)
  Sender: FDA-Public Use
  Company Number: US-JNJFOC-20150506709

PATIENT
  Age: 91 Year
  Sex: Female

DRUGS (2)
  1. RIVAROXABAN [Suspect]
     Active Substance: RIVAROXABAN
     Indication: EMBOLISM VENOUS
     Route: 048
  2. RIVAROXABAN [Suspect]
     Active Substance: RIVAROXABAN
     Indication: PULMONARY EMBOLISM
     Route: 048

REACTIONS (6)
  - Gastrointestinal haemorrhage [Unknown]
  - Delirium [Unknown]
  - Acute kidney injury [Unknown]
  - Colitis ischaemic [Unknown]
  - Hypovolaemia [Unknown]
  - Haemoglobin decreased [Unknown]
